FAERS Safety Report 25474373 (Version 1)
Quarter: 2025Q2

REPORT INFORMATION
  Report Type: Report from Study
  Country: US (occurrence: US)
  Receive Date: 20250624
  Receipt Date: 20250624
  Transmission Date: 20250716
  Serious: Yes (Hospitalization, Other)
  Sender: ALEXION PHARMACEUTICALS
  Company Number: US-AstraZeneca-CH-00896695A

PATIENT

DRUGS (1)
  1. STRENSIQ [Suspect]
     Active Substance: ASFOTASE ALFA
     Indication: Hypophosphatasia
     Route: 065

REACTIONS (17)
  - Gallbladder disorder [Unknown]
  - Chest pain [Unknown]
  - Myocardial infarction [Recovered/Resolved]
  - Glaucoma [Unknown]
  - Loss of consciousness [Unknown]
  - Diabetes mellitus [Unknown]
  - Hernia [Unknown]
  - COVID-19 [Unknown]
  - Illness [Unknown]
  - Dyspnoea [Unknown]
  - Arthralgia [Unknown]
  - Seasonal allergy [Unknown]
  - Musculoskeletal chest pain [Unknown]
  - Pain [Unknown]
  - Pain in extremity [Unknown]
  - Hypersensitivity [Unknown]
  - Irritability [Unknown]
